FAERS Safety Report 18811597 (Version 3)
Quarter: 2023Q1

REPORT INFORMATION
  Report Type: Report from Study
  Country: CA (occurrence: CA)
  Receive Date: 20210129
  Receipt Date: 20230214
  Transmission Date: 20230418
  Serious: Yes (Hospitalization, Other)
  Sender: FDA-Public Use
  Company Number: CA-NOVARTISPH-PHHY2014CA149241

PATIENT
  Age: 61 Year
  Sex: Male

DRUGS (3)
  1. ILARIS [Suspect]
     Active Substance: CANAKINUMAB
     Indication: Tumour necrosis factor receptor-associated periodic syndrome
     Dosage: 100 MG, EVERY 8 WEEKS
     Route: 058
     Dates: start: 20140923
  2. ILARIS [Suspect]
     Active Substance: CANAKINUMAB
     Dosage: 100 MG, EVERY 8 WEEKS
     Route: 058
     Dates: start: 20180528
  3. RAMIPRIL [Concomitant]
     Active Substance: RAMIPRIL
     Indication: Product used for unknown indication
     Dosage: 10 MG, QD
     Route: 065

REACTIONS (27)
  - Myocardial infarction [Recovering/Resolving]
  - Coronary artery occlusion [Unknown]
  - Pyrexia [Not Recovered/Not Resolved]
  - Chills [Recovered/Resolved]
  - Musculoskeletal stiffness [Recovered/Resolved]
  - Feeling cold [Recovered/Resolved]
  - Fatigue [Unknown]
  - Malaise [Unknown]
  - Arthralgia [Not Recovered/Not Resolved]
  - Arthritis [Unknown]
  - Chills [Not Recovered/Not Resolved]
  - Myalgia [Unknown]
  - Rash [Unknown]
  - Pain [Unknown]
  - Pain in extremity [Unknown]
  - Nausea [Unknown]
  - Exfoliative rash [Unknown]
  - Stress [Unknown]
  - Anxiety [Unknown]
  - General physical health deterioration [Unknown]
  - Inappropriate schedule of product administration [Unknown]
  - Vomiting [Unknown]
  - Back pain [Not Recovered/Not Resolved]
  - Tumour necrosis factor receptor-associated periodic syndrome [Unknown]
  - Condition aggravated [Unknown]
  - Influenza like illness [Unknown]
  - Therapeutic product effect incomplete [Unknown]

NARRATIVE: CASE EVENT DATE: 20140101
